FAERS Safety Report 20226935 (Version 1)
Quarter: 2021Q4

REPORT INFORMATION
  Report Type: Spontaneous
  Country: US (occurrence: US)
  Receive Date: 20211224
  Receipt Date: 20211224
  Transmission Date: 20220303
  Serious: No
  Sender: FDA-Public Use
  Company Number: US-BEH-2021139779

PATIENT
  Age: 28 Year
  Sex: Male
  Weight: 67.13 kg

DRUGS (1)
  1. HIZENTRA [Suspect]
     Active Substance: HUMAN IMMUNOGLOBULIN G
     Indication: Immune system disorder
     Dosage: 10 GRAM, WEEKLY, 3 TIMES PER MONTH
     Route: 058
     Dates: start: 2021, end: 2021

REACTIONS (6)
  - Injection site irritation [Unknown]
  - Recalled product administered [Unknown]
  - Product quality issue [Unknown]
  - Injection site swelling [Unknown]
  - Recalled product administered [Unknown]
  - Product quality issue [Unknown]
